FAERS Safety Report 7607916-3 (Version None)
Quarter: 2011Q3

REPORT INFORMATION
  Report Type: 
  Country: None (occurrence: None)
  Receive Date: 20110714
  Receipt Date: 20091122
  Transmission Date: 20111222
  Serious: Yes (Other)
  Sender: FDA-Public Use
  Company Number: US-BAYER-200940692NA

PATIENT
  Age: 40 Year
  Sex: Female
  Weight: 36.281 kg

DRUGS (33)
  1. MORPHINE [Concomitant]
     Dosage: 10 MG, UNK
     Route: 042
     Dates: start: 20000705
  2. DIGOXIN [Concomitant]
     Dosage: 0.5 MG, UNK
     Route: 042
     Dates: start: 20000601
  3. DIGOXIN [Concomitant]
     Dosage: 0.5 MG, UNK
     Route: 042
  4. AMICAR [Concomitant]
     Dosage: 5 G, X2
     Route: 042
     Dates: start: 20000705
  5. EPINEPHRINE [Concomitant]
     Dosage: 1 MG, UNK
     Route: 042
     Dates: start: 20000705
  6. EPINEPHRINE [Concomitant]
     Dosage: 2 MG/250 ML, UNK
     Route: 042
     Dates: start: 20000705
  7. HEPARIN SODIUM [Concomitant]
     Dosage: 500 ML, UNK
     Route: 042
     Dates: start: 20000601
  8. PROTAMINE SULFATE [Concomitant]
     Dosage: 500 MG, UNK
     Route: 042
     Dates: start: 20000705
  9. CRYOPRECIPITATES [Concomitant]
     Dosage: 10 U, UNK
     Dates: start: 20000601, end: 20000629
  10. PHENYLEPHRINE HCL [Concomitant]
     Dosage: 3 MG/30 ML, UNK
     Route: 042
     Dates: start: 20000601
  11. PLATELETS [Concomitant]
     Dosage: 2 U, UNK
     Dates: start: 20000601, end: 20000729
  12. TRASYLOL [Suspect]
     Indication: MITRAL VALVE REPLACEMENT
     Route: 042
     Dates: start: 20000801
  13. LIDOCAINE [Concomitant]
     Dosage: 100 MG, UNK
     Route: 042
     Dates: start: 20000705
  14. RED BLOOD CELLS [Concomitant]
     Dosage: 500 ML, UNK
     Route: 042
     Dates: start: 20000705
  15. VANCOMYCIN [Concomitant]
     Dosage: 1 G, UNK
     Dates: start: 20000531
  16. ACYCLOVIR [Concomitant]
     Dosage: 500 MG, UNK
     Dates: start: 20000611
  17. AMICAR [Concomitant]
     Dosage: 5 G, X2
     Route: 042
     Dates: start: 20000601
  18. DESMOPRESSIN [Concomitant]
     Dosage: 15 MCG, UNK
     Route: 042
     Dates: start: 20000601
  19. RED BLOOD CELLS [Concomitant]
     Dosage: 54 U, UNK
     Dates: start: 20000601, end: 20000729
  20. TRASYLOL [Suspect]
     Indication: AORTIC VALVE REPLACEMENT
  21. TRASYLOL [Suspect]
     Indication: AORTIC VALVE REPAIR
  22. MORPHINE [Concomitant]
     Dosage: 0.1 MG/KG, UNK
     Route: 030
     Dates: start: 20000601
  23. VERPAMIL HCL [Concomitant]
     Dosage: 5 MG, UNK
     Route: 042
     Dates: start: 20000601
  24. DIAZEPAM [Concomitant]
     Dosage: 30 MG, UNK
     Route: 042
     Dates: start: 20000705
  25. PROCAINAMIDE [Concomitant]
     Dosage: 100 MG, UNK
     Route: 042
     Dates: start: 20000601
  26. HEPARIN [Concomitant]
     Dosage: 10000 U, UNK
     Route: 042
     Dates: start: 20000705
  27. MANNITOL [Concomitant]
     Dosage: 25 G, UNK
     Route: 042
     Dates: start: 20000705
  28. LASIX [Concomitant]
     Dosage: 60 MG, UNK
     Route: 042
     Dates: start: 20000731
  29. CAPTOPRIL [Concomitant]
     Dosage: 25 MG, UNK
     Dates: start: 20000530
  30. EPINEPHRINE [Concomitant]
     Dosage: 2 MG/250 ML, UNK
     Route: 042
     Dates: start: 20000601
  31. HEXTEND [Concomitant]
     Dosage: 500 ML, UNK
     Route: 042
     Dates: start: 20000601
  32. FRESH FROZEN PLASMA [Concomitant]
     Dosage: 26 U, UNK
     Dates: start: 20000601, end: 20000729
  33. ACETYLSALICYLIC ACID SRT [Concomitant]
     Dosage: 81 MG, UNK
     Dates: start: 20000621

REACTIONS (13)
  - ANXIETY [None]
  - STRESS [None]
  - UNEVALUABLE EVENT [None]
  - RENAL IMPAIRMENT [None]
  - PSYCHIATRIC SYMPTOM [None]
  - EMOTIONAL DISTRESS [None]
  - FEAR [None]
  - PAIN [None]
  - ANHEDONIA [None]
  - DEPRESSION [None]
  - RENAL FAILURE [None]
  - RENAL INJURY [None]
  - INJURY [None]
